FAERS Safety Report 6251504-0 (Version None)
Quarter: 2009Q2

REPORT INFORMATION
  Report Type: 
  Country: None (occurrence: None)
  Receive Date: 20090630
  Receipt Date: 20090622
  Transmission Date: 20091009
  Serious: No
  Sender: FDA-Public Use
  Company Number: US-B.I. PHARMACEUTICALS,INC./RIDGEFIELD-2009-BP-07633BP

PATIENT
  Sex: Male

DRUGS (6)
  1. COMBIVENT [Suspect]
     Indication: CHRONIC OBSTRUCTIVE PULMONARY DISEASE
     Dosage: 8 PUF
     Route: 055
     Dates: start: 20040101
  2. TEGRETOL [Concomitant]
     Indication: CONVULSION
     Route: 048
  3. ATIVAN [Concomitant]
     Indication: ANXIETY
     Dosage: 3 MG
     Route: 048
  4. ZANTAC [Concomitant]
     Indication: DYSPEPSIA
     Route: 048
  5. MIRALAX [Concomitant]
     Indication: CONSTIPATION
     Route: 048
  6. ASPIRIN [Concomitant]
     Route: 048

REACTIONS (1)
  - DRUG INEFFECTIVE [None]
